FAERS Safety Report 7287260-7 (Version None)
Quarter: 2011Q1

REPORT INFORMATION
  Report Type: 
  Country: None (occurrence: None)
  Receive Date: 20110125
  Receipt Date: 20110105
  Transmission Date: 20110831
  Serious: Yes (Other)
  Sender: FDA-Public Use
  Company Number: 2211100-US-JNJFOC-20110101266

PATIENT
  Age: 48 Year
  Sex: Female

DRUGS (1)
  1. NEURTROGENA NORWEGIAN FORMULA HAND CREAM (GLYCEROL) CREAM [Suspect]
     Indication: DRY SKIN
     Dosage: 3 IN 1 DAY, TOPICAL
     Route: 061
     Dates: start: 20100501

REACTIONS (5)
  - DYSPNOEA [None]
  - EYE SWELLING [None]
  - PALPITATIONS [None]
  - LIQUID PRODUCT PHYSICAL ISSUE [None]
  - LIP SWELLING [None]
